FAERS Safety Report 4770688-4 (Version None)
Quarter: 2005Q3

REPORT INFORMATION
  Report Type: 
  Country: None (occurrence: None)
  Receive Date: 20050915
  Receipt Date: 20050907
  Transmission Date: 20060218
  Serious: Yes (Death, Hospitalization)
  Sender: FDA-Public Use
  Company Number: US-JNJFOC-20050902402

PATIENT
  Age: 25 Year
  Sex: Female

DRUGS (6)
  1. ACETAMINOPHEN [Suspect]
     Route: 048
  2. ACETAMINOPHEN [Suspect]
     Indication: SUICIDE ATTEMPT
     Route: 048
  3. ASPIRIN [Suspect]
     Indication: SUICIDE ATTEMPT
     Route: 048
  4. COCAINE [Suspect]
     Indication: SUICIDE ATTEMPT
  5. BENZODIAZEPINE [Suspect]
     Indication: SUICIDE ATTEMPT
     Route: 048
  6. OTHER ACID [Suspect]
     Indication: SUICIDE ATTEMPT

REACTIONS (8)
  - BLOOD CREATINE PHOSPHOKINASE INCREASED [None]
  - COMA [None]
  - COMPLETED SUICIDE [None]
  - DRUG SCREEN POSITIVE [None]
  - ELECTROCARDIOGRAM QT CORRECTED INTERVAL PROLONGED [None]
  - HEPATOCELLULAR DAMAGE [None]
  - INTENTIONAL MISUSE [None]
  - WHITE BLOOD CELL COUNT INCREASED [None]
